FAERS Safety Report 9464308 (Version 6)
Quarter: 2014Q2

REPORT INFORMATION
  Report Type: Spontaneous
  Country: US (occurrence: US)
  Receive Date: 20130819
  Receipt Date: 20140624
  Transmission Date: 20141212
  Serious: Yes (Hospitalization, Other)
  Sender: FDA-Public Use
  Company Number: US-MERCK-1308USA006550

PATIENT
  Sex: Female

DRUGS (8)
  1. FOSAMAX [Suspect]
     Indication: OSTEOPOROSIS
     Dosage: 70 MG, QW
     Route: 048
     Dates: end: 2008
  2. FOSAMAX [Suspect]
     Dosage: 10 MG, UNK
     Route: 048
  3. FOSAMAX [Suspect]
     Dosage: 5 MG, UNK
     Route: 048
     Dates: start: 1998
  4. ALENDRONATE SODIUM [Suspect]
     Indication: OSTEOPOROSIS
     Dosage: 70 MG, QW
     Route: 048
     Dates: start: 2008, end: 2010
  5. VITAMINS (UNSPECIFIED) [Concomitant]
     Dosage: UNK
     Dates: start: 1990
  6. CHOLECALCIFEROL [Concomitant]
     Dosage: 1000 IU, UNK
     Dates: start: 1990
  7. VITAMIN E [Concomitant]
     Dosage: 400 IU, UNK
     Dates: start: 1990
  8. CALCIUM (UNSPECIFIED) (+) VITAMIN D (UNSPECIFIED) [Concomitant]
     Dosage: 600 MG/400 IU
     Dates: start: 1990

REACTIONS (23)
  - Femur fracture [Unknown]
  - Femur fracture [Unknown]
  - Intramedullary rod insertion [Unknown]
  - Oophorectomy [Unknown]
  - Pancreatitis [Unknown]
  - Femur fracture [Unknown]
  - Foot fracture [Unknown]
  - Foot fracture [Unknown]
  - Medical device removal [Unknown]
  - Gastrointestinal disorder [Unknown]
  - Hyperlipidaemia [Unknown]
  - Ecchymosis [Unknown]
  - Haemorrhagic anaemia [Unknown]
  - Medical device removal [Unknown]
  - Tinnitus [Unknown]
  - Eustachian tube obstruction [Unknown]
  - Chapped lips [Unknown]
  - Ear pain [Unknown]
  - Lymphadenopathy [Unknown]
  - Vaginal haemorrhage [Unknown]
  - Blood cholesterol increased [Unknown]
  - Pain in extremity [Unknown]
  - Abdominal discomfort [Unknown]
